FAERS Safety Report 9816386 (Version 2)
Quarter: 2014Q1

REPORT INFORMATION
  Report Type: Report from Study
  Country: CA (occurrence: CA)
  Receive Date: 20140114
  Receipt Date: 20140326
  Transmission Date: 20141002
  Serious: Yes (Life-Threatening, Hospitalization, Other)
  Sender: FDA-Public Use
  Company Number: PHHY2014CA002317

PATIENT
  Sex: Female

DRUGS (1)
  1. LAMPRENE [Suspect]
     Indication: TUBERCULOSIS
     Dosage: UNK UKN, UNK

REACTIONS (2)
  - Suicidal ideation [Unknown]
  - Psychotic disorder [Unknown]
